FAERS Safety Report 4656527-0 (Version None)
Quarter: 2005Q2

REPORT INFORMATION
  Report Type: 
  Country: None (occurrence: None)
  Receive Date: 20050504
  Receipt Date: 20050422
  Transmission Date: 20051028
  Serious: Yes (Hospitalization)
  Sender: FDA-Public Use
  Company Number: 200510289BFR

PATIENT
  Age: 67 Year
  Sex: Male

DRUGS (3)
  1. KOGENATE [Suspect]
     Indication: SURGERY
     Dosage: 3 KIU, TOTAL DAILY, INTRAVENOUS
     Route: 042
     Dates: start: 20041126, end: 20041213
  2. HELIXATE [Suspect]
     Indication: SURGERY
     Dosage: 2 KIU, TOTAL DAILY, INTRAVENOUS
     Route: 042
     Dates: start: 20041122
  3. HELIXATE NEXGEN (OCTOLOG ALFA) [Suspect]
     Indication: SURGERY
     Dosage: 3 KIU, TOTAL DAILY, INTRAVENOUS
     Route: 042
     Dates: start: 20041124, end: 20041126

REACTIONS (5)
  - CHOLECYSTITIS ACUTE [None]
  - DRUG INEFFECTIVE [None]
  - FACTOR VIII INHIBITION [None]
  - HAEMATOMA [None]
  - PERICARDIAL HAEMORRHAGE [None]
